FAERS Safety Report 10043221 (Version 1)
Quarter: 2014Q1

REPORT INFORMATION
  Report Type: Spontaneous
  Country: CA (occurrence: CA)
  Receive Date: 20140328
  Receipt Date: 20140328
  Transmission Date: 20141002
  Serious: Yes (Other)
  Sender: FDA-Public Use
  Company Number: CA-BEH-2014041359

PATIENT
  Age: 5 Year
  Sex: Male

DRUGS (2)
  1. IVIG [Suspect]
     Indication: HISTIOCYTOSIS HAEMATOPHAGIC
  2. IVIG [Suspect]
     Indication: HISTIOCYTOSIS HAEMATOPHAGIC

REACTIONS (1)
  - Drug ineffective [Recovered/Resolved]
